FAERS Safety Report 21811145 (Version 1)
Quarter: 2023Q1

REPORT INFORMATION
  Report Type: Spontaneous
  Country: US (occurrence: None)
  Receive Date: 20230102
  Receipt Date: 20230102
  Transmission Date: 20230418
  Serious: Yes (Disabling)
  Sender: FDA-Public Use
  Company Number: None

PATIENT
  Age: 58 Year
  Sex: Female
  Weight: 101.25 kg

DRUGS (8)
  1. PAXLOVID [Suspect]
     Active Substance: NIRMATRELVIR\RITONAVIR
     Indication: COVID-19
     Dosage: OTHER QUANTITY : 3 TABLET(S);?FREQUENCY : TWICE A DAY;?
     Route: 048
     Dates: start: 20221230, end: 20221230
  2. DIALITAZIM [Concomitant]
  3. METFORMIN [Concomitant]
     Active Substance: METFORMIN HYDROCHLORIDE
  4. LOW DOSE ASPIRIN [Concomitant]
     Active Substance: ASPIRIN
  5. ROSUVASTATIN [Concomitant]
     Active Substance: ROSUVASTATIN
  6. VITAMIN B12 [Concomitant]
     Active Substance: CYANOCOBALAMIN
  7. TYLENOL [Concomitant]
     Active Substance: ACETAMINOPHEN
  8. MUCINEX FAST MAX CONGESTION AND COUGH [Concomitant]

REACTIONS (4)
  - Hypersensitivity [None]
  - Rash erythematous [None]
  - Pruritus [None]
  - Swelling [None]

NARRATIVE: CASE EVENT DATE: 20221231
